FAERS Safety Report 23492206 (Version 1)
Quarter: 2024Q1

REPORT INFORMATION
  Report Type: Report from Study
  Country: US (occurrence: US)
  Receive Date: 20240207
  Receipt Date: 20240207
  Transmission Date: 20240410
  Serious: No
  Sender: FDA-Public Use
  Company Number: US-ORG100014127-2022001069

PATIENT
  Age: 63 Year
  Sex: Female

DRUGS (19)
  1. LYSODREN [Suspect]
     Active Substance: MITOTANE
     Indication: Adrenal gland cancer
     Dosage: 02 TABLETS THREE TIMES DAILY
     Route: 048
     Dates: start: 20220806
  2. LYSODREN [Suspect]
     Active Substance: MITOTANE
     Indication: Adrenal gland cancer
     Dosage: 4 TABLETS BY MOUTH EVERY MORNING, 3 TABLETS IN THE AFTERNOON , AND 3 TABLETS EVERY EVENING
     Route: 048
     Dates: start: 20220806
  3. LYSODREN [Suspect]
     Active Substance: MITOTANE
     Indication: Adrenal gland cancer
     Dosage: DOSE INCREASED
  4. FUROSEMIDE [Concomitant]
     Active Substance: FUROSEMIDE
     Indication: Product used for unknown indication
  5. HYDROCORTISO CRE [Concomitant]
     Indication: Product used for unknown indication
  6. LEVOTHYROXIN TAB 50MCG [Concomitant]
     Indication: Product used for unknown indication
  7. POT CHLORIDE TAB 20MEQ ER [Concomitant]
     Indication: Product used for unknown indication
  8. ROSUVASTATIN TAB 10MG; 20 MG [Concomitant]
     Indication: Product used for unknown indication
  9. BUPROPION TAB 150MG SR [Concomitant]
     Indication: Product used for unknown indication
  10. BUPROPION TAB 200MG SR [Concomitant]
     Indication: Product used for unknown indication
  11. Flucelvax Quad INJ  2022-2023 [Concomitant]
     Indication: Product used for unknown indication
  12. FLUCONAZOLE TAB 150 MG [Concomitant]
     Indication: Product used for unknown indication
  13. GABAPENTIN CAP 300MG; [Concomitant]
     Indication: Product used for unknown indication
  14. LEVOTHYROXIN TAB 100 MCG , 50 MCG, 75 MCG, 88 MCG [Concomitant]
     Indication: Product used for unknown indication
  15. ONDANSETRON [Concomitant]
     Active Substance: ONDANSETRON
     Indication: Product used for unknown indication
  16. PFIZER BIVAL INJ BA4/BA5 [Concomitant]
     Indication: Product used for unknown indication
  17. PROCHLORPER TAB 10MG [Concomitant]
     Indication: Product used for unknown indication
  18. PROCHLORPER TAB 10MG [Concomitant]
     Indication: Product used for unknown indication
  19. SOLU-CORTEF [Concomitant]
     Active Substance: HYDROCORTISONE SODIUM SUCCINATE
     Indication: Product used for unknown indication

REACTIONS (6)
  - Dyspnoea [Not Recovered/Not Resolved]
  - Dysgraphia [Not Recovered/Not Resolved]
  - Aphasia [Not Recovered/Not Resolved]
  - Memory impairment [Not Recovered/Not Resolved]
  - Fatigue [Not Recovered/Not Resolved]
  - Dizziness [Not Recovered/Not Resolved]

NARRATIVE: CASE EVENT DATE: 20230712
